FAERS Safety Report 20302272 (Version 1)
Quarter: 2022Q1

REPORT INFORMATION
  Report Type: Spontaneous
  Country: US (occurrence: US)
  Receive Date: 20220106
  Receipt Date: 20220106
  Transmission Date: 20220423
  Serious: Yes (Other)
  Sender: FDA-Public Use
  Company Number: US-CELLTRION INC.-2021US015830

PATIENT

DRUGS (4)
  1. TRUXIMA [Suspect]
     Active Substance: RITUXIMAB-ABBS
     Indication: Glomerulonephritis minimal lesion
     Dosage: 600 MG WEEKLY X 4 (10MG/ML)
     Route: 042
     Dates: start: 20211014
  2. TRUXIMA [Suspect]
     Active Substance: RITUXIMAB-ABBS
     Indication: Nephrotic syndrome
     Dosage: 600 MG WEEKLY X 4 (10MG/ML)
     Route: 042
     Dates: start: 20211021
  3. TRUXIMA [Suspect]
     Active Substance: RITUXIMAB-ABBS
     Dosage: 600 MG WEEKLY X 4 (10MG/ML)
     Route: 042
     Dates: start: 20211028
  4. TRUXIMA [Suspect]
     Active Substance: RITUXIMAB-ABBS
     Dosage: 600 MG WEEKLY X 4 (10MG/ML)
     Route: 042
     Dates: start: 20211104

REACTIONS (3)
  - Glomerulonephritis minimal lesion [Unknown]
  - Nephrotic syndrome [Unknown]
  - Off label use [Unknown]
